FAERS Safety Report 16568923 (Version 1)
Quarter: 2019Q3

REPORT INFORMATION
  Report Type: Spontaneous
  Country: JP (occurrence: JP)
  Receive Date: 20190713
  Receipt Date: 20190713
  Transmission Date: 20191004
  Serious: Yes (Hospitalization, Other)
  Sender: FDA-Public Use
  Company Number: JP-UCBSA-2019030026

PATIENT
  Age: 20 Month
  Sex: Male

DRUGS (2)
  1. XYZAL [Suspect]
     Active Substance: LEVOCETIRIZINE DIHYDROCHLORIDE
     Indication: PRODUCT USED FOR UNKNOWN INDICATION
     Dosage: 2.5 ML, BID SYRUP
     Route: 048
     Dates: start: 201805
  2. XYZAL [Suspect]
     Active Substance: LEVOCETIRIZINE DIHYDROCHLORIDE
     Dosage: 20 ML, SINGLE SYRUP
     Route: 048
     Dates: start: 201805, end: 201805

REACTIONS (8)
  - Balance disorder [Recovered/Resolved]
  - Vomiting [Recovered/Resolved]
  - Visual impairment [Recovered/Resolved]
  - Somnolence [Recovered/Resolved]
  - Accidental overdose [Unknown]
  - Altered state of consciousness [Recovered/Resolved]
  - Toxicity to various agents [Recovered/Resolved]
  - Cough [Recovered/Resolved]

NARRATIVE: CASE EVENT DATE: 201805
